FAERS Safety Report 9840577 (Version 1)
Quarter: 2013Q4

REPORT INFORMATION
  Report Type: Spontaneous
  Country: US (occurrence: None)
  Receive Date: 20131211
  Receipt Date: 20131211
  Transmission Date: 20140711
  Serious: Yes (Other)
  Sender: FDA-Public Use
  Company Number: ALL1-2011-05119

PATIENT
  Age: 43 Year
  Sex: Female

DRUGS (2)
  1. FIRAZYR [Suspect]
     Indication: PRODUCT USED FOR UNKNOWN INDICATION
     Route: 041
     Dates: start: 20111223
  2. UNSPECIFIED PAIN MEDICATION (NO PREF. NAME) [Suspect]

REACTIONS (3)
  - Arthropathy [None]
  - Pain [None]
  - Rash [None]
